FAERS Safety Report 9080608 (Version 2)
Quarter: 2013Q1

REPORT INFORMATION
  Report Type: Spontaneous
  Country: US (occurrence: US)
  Receive Date: 20130131
  Receipt Date: 20130221
  Transmission Date: 20140127
  Serious: No
  Sender: FDA-Public Use
  Company Number: US-009507513-1301USA012902

PATIENT
  Age: 51 Year
  Sex: Male

DRUGS (9)
  1. VICTRELIS [Suspect]
     Indication: HEPATITIS C
     Dosage: 800 MG, TID
     Route: 048
  2. PEGASYS [Suspect]
     Dosage: UNK
  3. RIBASPHERE [Suspect]
     Dosage: UNK
  4. AMLODIPINE [Concomitant]
  5. METOPROLOL [Concomitant]
  6. DIAZEPAM [Concomitant]
  7. TEMAZEPAM [Concomitant]
  8. HYDROCHLOROTHIAZIDE (+) TRIAMTERENE [Concomitant]
  9. ACETAMINOPHEN (+) HYDROCODONE BITARTRATE [Concomitant]

REACTIONS (2)
  - Blood count abnormal [Unknown]
  - Neuropathy peripheral [Not Recovered/Not Resolved]
